FAERS Safety Report 18019266 (Version 1)
Quarter: 2020Q3

REPORT INFORMATION
  Report Type: Spontaneous
  Country: US (occurrence: US)
  Receive Date: 20200713
  Receipt Date: 20200713
  Transmission Date: 20201103
  Serious: Yes (Other)
  Sender: FDA-Public Use
  Company Number: None

PATIENT
  Age: 74 Year
  Sex: Female
  Weight: 51.71 kg

DRUGS (30)
  1. MAXALT [Concomitant]
     Active Substance: RIZATRIPTAN BENZOATE
  2. VITAMIN D3 [Concomitant]
     Active Substance: CHOLECALCIFEROL
  3. TYLENOL [Concomitant]
     Active Substance: ACETAMINOPHEN
  4. HYDROCODONE [Concomitant]
     Active Substance: HYDROCODONE
  5. FAMITIDINE [Concomitant]
  6. TRAZODONE [Concomitant]
     Active Substance: TRAZODONE HYDROCHLORIDE
  7. BIOTIN [Concomitant]
     Active Substance: BIOTIN
  8. SINEMENT [Concomitant]
  9. VITAMIN B12 [Concomitant]
     Active Substance: CYANOCOBALAMIN
  10. PRAVASITIN [Concomitant]
  11. CLOBETASOL [Concomitant]
     Active Substance: CLOBETASOL
  12. VOLTAREN [Concomitant]
     Active Substance: DICLOFENAC SODIUM
  13. NEURONTIN [Concomitant]
     Active Substance: GABAPENTIN
  14. LIDODERM [Concomitant]
     Active Substance: LIDOCAINE
  15. GLUCOSAM CONDROITIN MSN [Concomitant]
  16. ESTRACE [Concomitant]
     Active Substance: ESTRADIOL
  17. NAMENDA [Concomitant]
     Active Substance: MEMANTINE HYDROCHLORIDE
  18. MAGNESIUM [Concomitant]
     Active Substance: MAGNESIUM
  19. POTASSIUM [Concomitant]
     Active Substance: POTASSIUM
  20. ZETIA [Suspect]
     Active Substance: EZETIMIBE
  21. ARICEPT [Concomitant]
     Active Substance: DONEPEZIL HYDROCHLORIDE
  22. BOTOX [Concomitant]
     Active Substance: ONABOTULINUMTOXINA
  23. AMBIEN [Concomitant]
     Active Substance: ZOLPIDEM TARTRATE
  24. VITAMIN B COMPLEX [Concomitant]
     Active Substance: CYANOCOBALAMIN\DEXPANTHENOL\NIACINAMIDE\PYRIDOXINE HYDROCHLORIDE\RIBOFLAVIN 5^-PHOSPHATE SODIUM\THIAMINE HYDROCHLORIDE\VITAMIN B COMPLEX
  25. MULTI VIT [Concomitant]
     Active Substance: VITAMINS
  26. TUMS [Concomitant]
     Active Substance: CALCIUM CARBONATE
  27. EMGALITY [Suspect]
     Active Substance: GALCANEZUMAB-GNLM
     Indication: MIGRAINE
     Dosage: ?          QUANTITY:1 DF DOSAGE FORM;OTHER FREQUENCY:1STMO 2INJ,2NDMO 1;OTHER ROUTE:INJECTION?
     Dates: start: 20200326, end: 20200527
  28. FIORICET [Concomitant]
     Active Substance: ACETAMINOPHEN\BUTALBITAL\CAFFEINE
  29. SPINALAND CERVICAL EPIDURALS [Concomitant]
  30. CALCIUM [Concomitant]
     Active Substance: CALCIUM

REACTIONS (3)
  - Tremor [None]
  - Thunderclap headache [None]
  - Migraine [None]

NARRATIVE: CASE EVENT DATE: 20200528
